FAERS Safety Report 14939962 (Version 1)
Quarter: 2018Q2

REPORT INFORMATION
  Report Type: Spontaneous
  Country: DE (occurrence: DE)
  Receive Date: 20180525
  Receipt Date: 20180525
  Transmission Date: 20180711
  Serious: Yes (Hospitalization)
  Sender: FDA-Public Use
  Company Number: DE-PFIZER INC-2018209821

PATIENT
  Age: 96 Year
  Sex: Female

DRUGS (9)
  1. METOPROLOL. [Concomitant]
     Active Substance: METOPROLOL
     Dosage: 47.5 MG 1X/DAY, 0-1-0-0
  2. ASPIRIN. [Concomitant]
     Active Substance: ASPIRIN
     Dosage: 100 MG 1X/DAY, 1-0-0-0
  3. LORAZEPAM. [Suspect]
     Active Substance: LORAZEPAM
     Dosage: 1 MG 1X/DAY, 0-0-0-1
  4. FENTANYL. [Suspect]
     Active Substance: FENTANYL
     Dosage: 25 G/H, UNK
  5. PANTOPRAZOL [Concomitant]
     Active Substance: PANTOPRAZOLE SODIUM
     Dosage: 40 MG 1X/DAY, 1-0-0-0
  6. VIGANTOLETTEN [Concomitant]
     Active Substance: CHOLECALCIFEROL
     Dosage: 1000 IU 1X/DAY, 1-0-0-0
  7. XIPAMIDE [Concomitant]
     Active Substance: XIPAMIDE
     Dosage: 10 MG 1X/DAY, 1-0-0-0
  8. MAGNESIUM [Concomitant]
     Active Substance: MAGNESIUM
     Dosage: 1 DF 1X/DAY, 1-0-0-0, EFFERVESCENT TABLETS
  9. RAMIPRIL. [Concomitant]
     Active Substance: RAMIPRIL
     Dosage: 2.5 MG 2X/DAY, 1-0-1-0 (IN 12 HOURS)

REACTIONS (2)
  - Fracture [Unknown]
  - Fall [Unknown]
